FAERS Safety Report 15738141 (Version 1)
Quarter: 2018Q4

REPORT INFORMATION
  Report Type: Spontaneous
  Country: JP (occurrence: JP)
  Receive Date: 20181219
  Receipt Date: 20181219
  Transmission Date: 20190205
  Serious: No
  Sender: FDA-Public Use
  Company Number: JP-LUPIN PHARMACEUTICALS INC.-2016-05965

PATIENT
  Age: 60 Year
  Sex: Male

DRUGS (8)
  1. GABAPENTIN. [Interacting]
     Active Substance: GABAPENTIN
     Dosage: 200 MG, QD
     Route: 048
     Dates: start: 20081025
  2. FLUNITRAZEPAM [Interacting]
     Active Substance: FLUNITRAZEPAM
     Indication: INSOMNIA
     Dosage: 0.5 MG, QD, BEFORE BEDTIME
     Route: 048
  3. LOXOPROFEN [Concomitant]
     Active Substance: LOXOPROFEN
     Indication: PRODUCT USED FOR UNKNOWN INDICATION
     Dosage: 180 MG, UNK
     Route: 065
  4. SODIUM VALPROATE [Interacting]
     Active Substance: VALPROATE SODIUM
     Indication: PAIN
  5. SODIUM VALPROATE [Interacting]
     Active Substance: VALPROATE SODIUM
     Indication: EPILEPSY
  6. GABAPENTIN. [Suspect]
     Active Substance: GABAPENTIN
     Indication: NEURALGIA
     Dosage: 200 MG, BID, MORNING AND LATE AFTERNOON
     Route: 048
     Dates: start: 20081021
  7. SODIUM VALPROATE [Interacting]
     Active Substance: VALPROATE SODIUM
     Indication: PARALYSIS
     Dosage: 1200 MG, QD
     Route: 048
  8. GABAPENTIN. [Interacting]
     Active Substance: GABAPENTIN
     Dosage: 100 MG, BID, MORNING AND LATE AFTERNOON
     Route: 048
     Dates: start: 20081027

REACTIONS (2)
  - Drug interaction [Unknown]
  - Gait disturbance [Recovered/Resolved]

NARRATIVE: CASE EVENT DATE: 200810
